FAERS Safety Report 19393974 (Version 1)
Quarter: 2021Q2

REPORT INFORMATION
  Report Type: Spontaneous
  Country: US (occurrence: US)
  Receive Date: 20210608
  Receipt Date: 20210608
  Transmission Date: 20210717
  Serious: Yes (Hospitalization)
  Sender: FDA-Public Use
  Company Number: None

PATIENT
  Sex: Male

DRUGS (5)
  1. ORENITRAM [Concomitant]
     Active Substance: TREPROSTINIL
  2. OPSUMIT [Concomitant]
     Active Substance: MACITENTAN
  3. VITAMIN D3 [Concomitant]
     Active Substance: CHOLECALCIFEROL
  4. TURMERIC [Concomitant]
     Active Substance: HERBALS\TURMERIC
  5. SILDENAFIL. [Suspect]
     Active Substance: SILDENAFIL
     Indication: PRODUCT USED FOR UNKNOWN INDICATION
     Route: 048
     Dates: start: 20200919

REACTIONS (1)
  - Hospitalisation [None]
